FAERS Safety Report 5866691-3 (Version None)
Quarter: 2008Q3

REPORT INFORMATION
  Report Type: 
  Country: None (occurrence: None)
  Receive Date: 20080902
  Receipt Date: 20080821
  Transmission Date: 20090109
  Serious: Yes (Other)
  Sender: FDA-Public Use
  Company Number: US-BAYER-200829344NA

PATIENT
  Age: 50 Year
  Sex: Female

DRUGS (14)
  1. AVELOX [Suspect]
     Indication: SINUSITIS
     Dosage: TOTAL DAILY DOSE: 400 MG  UNIT DOSE: 400 MG
     Route: 048
     Dates: start: 20080724, end: 20080724
  2. CELEBREX [Concomitant]
     Dosage: TOTAL DAILY DOSE: 400 MG  UNIT DOSE: 200 MG
     Route: 048
     Dates: start: 20080404
  3. CETIRIZINE HCL [Concomitant]
     Dosage: TOTAL DAILY DOSE: 10 MG  UNIT DOSE: 10 MG
     Route: 048
     Dates: start: 20070130
  4. HISTEX [Concomitant]
     Route: 048
  5. BONIVA [Concomitant]
     Dosage: TOTAL DAILY DOSE: 150 MG  UNIT DOSE: 150 MG
     Route: 048
     Dates: start: 20070927
  6. PROZAC [Concomitant]
     Dosage: TOTAL DAILY DOSE: 40 MG  UNIT DOSE: 40 MG
     Route: 048
     Dates: start: 20070927
  7. TOPAMAX [Concomitant]
     Dosage: TOTAL DAILY DOSE: 75 MG  UNIT DOSE: 25 MG
     Route: 048
     Dates: start: 20070927
  8. AMBIEN CR [Concomitant]
     Dosage: TOTAL DAILY DOSE: 12.5 MG  UNIT DOSE: 12.5 MG
     Route: 048
     Dates: start: 20070927
  9. TRANXENE T-TAB [Concomitant]
     Dosage: TOTAL DAILY DOSE: 15 MG  UNIT DOSE: 15 MG
     Route: 048
     Dates: start: 20070927
  10. WELLBUTRIN XL [Concomitant]
     Dosage: TOTAL DAILY DOSE: 150 MG  UNIT DOSE: 150 MG
     Dates: start: 20070927
  11. GLUCOPHAGE [Concomitant]
     Dosage: TOTAL DAILY DOSE: 1000 MG  UNIT DOSE: 500 MG
     Route: 048
     Dates: start: 20071019
  12. TOPROL-XL [Concomitant]
     Dosage: TOTAL DAILY DOSE: 25 MG  UNIT DOSE: 25 MG
     Route: 048
     Dates: start: 20071218
  13. PREVACID [Concomitant]
     Dosage: TOTAL DAILY DOSE: 30 MG  UNIT DOSE: 30 MG
     Route: 048
     Dates: start: 20080404
  14. SOMA [Concomitant]
     Dosage: UNIT DOSE: 350 MG
     Route: 048
     Dates: start: 20080505

REACTIONS (11)
  - ANAPHYLACTIC REACTION [None]
  - ASTHENIA [None]
  - BLOOD PRESSURE INCREASED [None]
  - HEART RATE INCREASED [None]
  - HYPERHIDROSIS [None]
  - NAUSEA [None]
  - PHARYNGEAL OEDEMA [None]
  - PRURITUS [None]
  - RESPIRATORY RATE INCREASED [None]
  - URTICARIA [None]
  - VOMITING [None]
